FAERS Safety Report 9178973 (Version 3)
Quarter: 2013Q2

REPORT INFORMATION
  Report Type: Spontaneous
  Country: JP (occurrence: JP)
  Receive Date: 20130321
  Receipt Date: 20130405
  Transmission Date: 20140414
  Serious: Yes (Hospitalization)
  Sender: FDA-Public Use
  Company Number: JP-009507513-1303JPN008186

PATIENT
  Age: 77 Year
  Sex: Male
  Weight: 56 kg

DRUGS (5)
  1. PREMINENT TABLETS [Suspect]
     Indication: HYPERTENSION
     Dosage: UNK
     Route: 048
     Dates: start: 20121220, end: 20130304
  2. ALEVIATIN [Suspect]
     Indication: EPILEPSY
     Dosage: 200 MG, BID
     Route: 048
     Dates: start: 20121113, end: 20130304
  3. HERBESSER [Concomitant]
     Indication: HYPERTENSION
     Dosage: 100 MG, QD
     Route: 048
     Dates: start: 20121117
  4. ADALAT CR [Concomitant]
     Indication: HYPERTENSION
     Dosage: 40 MG, QD
     Route: 048
     Dates: start: 20121220
  5. ALDOMET (METHYLDOPATE HYDROCHLORIDE) [Concomitant]
     Indication: HYPERTENSION
     Dosage: 750 MG, TID
     Route: 048
     Dates: start: 20130214, end: 20130304

REACTIONS (1)
  - Rhabdomyolysis [Recovered/Resolved]
